FAERS Safety Report 20096128 (Version 1)
Quarter: 2021Q4

REPORT INFORMATION
  Report Type: Spontaneous
  Country: US (occurrence: None)
  Receive Date: 20211119
  Receipt Date: 20211119
  Transmission Date: 20220303
  Serious: Yes (Hospitalization)
  Sender: FDA-Public Use
  Company Number: None

PATIENT
  Sex: Female

DRUGS (16)
  1. LETAIRIS [Suspect]
     Active Substance: AMBRISENTAN
     Indication: Pulmonary arterial hypertension
     Dosage: FREQUENCY : DAILY;?
     Route: 048
  2. DIGOXIN [Concomitant]
     Active Substance: DIGOXIN
  3. IRON [Concomitant]
     Active Substance: IRON
  4. ADCIRCA [Concomitant]
     Active Substance: TADALAFIL
  5. ASPIRIN [Concomitant]
     Active Substance: ASPIRIN
  6. TYLENOL [Concomitant]
     Active Substance: ACETAMINOPHEN
  7. COUMADIN [Concomitant]
     Active Substance: WARFARIN SODIUM
  8. PREDNISONE [Concomitant]
     Active Substance: PREDNISONE
  9. PROTONIX [Concomitant]
     Active Substance: PANTOPRAZOLE SODIUM
  10. LIPITOR [Concomitant]
     Active Substance: ATORVASTATIN CALCIUM
  11. MEDROL [Concomitant]
     Active Substance: METHYLPREDNISOLONE
  12. BUMEX [Concomitant]
     Active Substance: BUMETANIDE
  13. TOBRAMYCIN [Concomitant]
     Active Substance: TOBRAMYCIN
  14. VITAMIN B12 [Concomitant]
     Active Substance: CYANOCOBALAMIN
  15. ZOLOFT [Concomitant]
     Active Substance: SERTRALINE HYDROCHLORIDE
  16. CELLCEPT [Concomitant]
     Active Substance: MYCOPHENOLATE MOFETIL

REACTIONS (1)
  - Hospitalisation [None]
